FAERS Safety Report 15254628 (Version 1)
Quarter: 2018Q3

REPORT INFORMATION
  Report Type: Spontaneous
  Country: CA (occurrence: CA)
  Receive Date: 20180808
  Receipt Date: 20180808
  Transmission Date: 20181010
  Serious: Yes (Other)
  Sender: FDA-Public Use
  Company Number: CA-PFIZER INC-2018310831

PATIENT
  Age: 37 Year
  Sex: Male

DRUGS (5)
  1. METRONIDAZOLE. [Suspect]
     Active Substance: METRONIDAZOLE
     Indication: ANORECTAL DISCOMFORT
     Dosage: UNK (10?DAY COURSE)
     Dates: start: 201705, end: 201705
  2. AMOXI?CLAV [Concomitant]
     Active Substance: AMOXICILLIN\CLAVULANATE POTASSIUM
     Indication: ANORECTAL DISCOMFORT
     Dosage: UNK (14?DAY COURSE)
     Dates: start: 201705, end: 2017
  3. CIPROFLOXACIN. [Suspect]
     Active Substance: CIPROFLOXACIN
     Indication: ANORECTAL DISCOMFORT
     Dosage: UNK (10?DAY COURSE)
     Dates: start: 201705, end: 201705
  4. CIPROFLOXACIN. [Suspect]
     Active Substance: CIPROFLOXACIN
     Dosage: UNK (14?DAY COURSE)
     Dates: start: 201705, end: 2017
  5. METRONIDAZOLE. [Suspect]
     Active Substance: METRONIDAZOLE
     Dosage: UNK (14?DAY COURSE)
     Dates: start: 201705, end: 2017

REACTIONS (6)
  - Anal inflammation [Unknown]
  - Anal abscess [Unknown]
  - Condition aggravated [Unknown]
  - Drug ineffective [Unknown]
  - Rectal haemorrhage [Unknown]
  - Aphthous ulcer [Unknown]
